FAERS Safety Report 7307258-X (Version None)
Quarter: 2011Q1

REPORT INFORMATION
  Report Type: 
  Country: None (occurrence: None)
  Receive Date: 20110223
  Receipt Date: 20110215
  Transmission Date: 20110831
  Serious: Yes (Other)
  Sender: FDA-Public Use
  Company Number: US-PFIZER INC-2010152167

PATIENT
  Sex: Female

DRUGS (4)
  1. XANAX [Concomitant]
     Dosage: UNK
  2. LYRICA [Suspect]
     Indication: RADICULITIS CERVICAL
     Dosage: 50 MG, 1X/DAY, AT NIGHT
     Route: 048
     Dates: start: 20101110, end: 20101115
  3. HYDROCODONE [Concomitant]
     Dosage: UNK
  4. SIMVASTATIN [Concomitant]
     Dosage: UNK

REACTIONS (2)
  - RASH GENERALISED [None]
  - OEDEMA PERIPHERAL [None]
